FAERS Safety Report 10407646 (Version 1)
Quarter: 2014Q3

REPORT INFORMATION
  Report Type: Spontaneous
  Country: BR (occurrence: BR)
  Receive Date: 20140825
  Receipt Date: 20140825
  Transmission Date: 20150326
  Serious: Yes (Other)
  Sender: FDA-Public Use
  Company Number: PHHY2014BR105905

PATIENT
  Age: 85 Year
  Sex: Female
  Weight: 45 kg

DRUGS (4)
  1. ACLASTA [Suspect]
     Active Substance: ZOLEDRONIC ACID
     Dosage: 1 DF, YEARLY
     Route: 042
     Dates: start: 201101
  2. ACLASTA [Suspect]
     Active Substance: ZOLEDRONIC ACID
     Dosage: 1 DF, YEARLY
     Route: 042
     Dates: start: 201201
  3. ACLASTA [Suspect]
     Active Substance: ZOLEDRONIC ACID
     Indication: OSTEOPOROSIS
     Dosage: 1 DF, YEARLY
     Route: 042
     Dates: start: 201004
  4. ACLASTA [Suspect]
     Active Substance: ZOLEDRONIC ACID
     Dosage: 1 DF, YEARLY
     Route: 042
     Dates: start: 201304

REACTIONS (5)
  - Headache [Recovered/Resolved]
  - Fear of falling [Unknown]
  - Joint dislocation [Recovering/Resolving]
  - Gait disturbance [Recovering/Resolving]
  - Syringe issue [Unknown]

NARRATIVE: CASE EVENT DATE: 201204
